FAERS Safety Report 10709386 (Version 6)
Quarter: 2022Q3

REPORT INFORMATION
  Report Type: Other
  Country: CO (occurrence: CO)
  Receive Date: 20150114
  Receipt Date: 20220923
  Transmission Date: 20221027
  Serious: Yes (Hospitalization, Other)
  Sender: FDA-Public Use
  Company Number: CO-ROCHE-1495439

PATIENT
  Age: 45 Year
  Sex: Female
  Weight: 65 kg

DRUGS (10)
  1. XOLAIR [Suspect]
     Active Substance: OMALIZUMAB
     Indication: Asthma
     Dosage: FOR 12 MONTHS
     Route: 058
     Dates: start: 20140716
  2. XOLAIR [Suspect]
     Active Substance: OMALIZUMAB
     Indication: Rhinitis
     Dosage: FOR 12 MONTHS
     Route: 058
     Dates: start: 20141104
  3. XOLAIR [Suspect]
     Active Substance: OMALIZUMAB
     Indication: Respiratory failure
     Route: 058
     Dates: start: 20141210
  4. XOLAIR [Suspect]
     Active Substance: OMALIZUMAB
     Indication: Mastocytosis
     Route: 058
  5. XOLAIR [Suspect]
     Active Substance: OMALIZUMAB
     Route: 058
  6. XOLAIR [Suspect]
     Active Substance: OMALIZUMAB
     Route: 058
     Dates: start: 20180909, end: 20180909
  7. XOLAIR [Suspect]
     Active Substance: OMALIZUMAB
     Route: 058
     Dates: start: 201907, end: 201907
  8. XOLAIR [Suspect]
     Active Substance: OMALIZUMAB
     Route: 058
  9. ALBUTEROL [Concomitant]
     Active Substance: ALBUTEROL
  10. MONTELUKAST [Concomitant]
     Active Substance: MONTELUKAST SODIUM

REACTIONS (30)
  - Dysphonia [Not Recovered/Not Resolved]
  - Anxiety [Recovering/Resolving]
  - Illness [Unknown]
  - Underdose [Recovering/Resolving]
  - Drug ineffective [Unknown]
  - Malaise [Unknown]
  - Pyrexia [Recovered/Resolved]
  - Systemic mastocytosis [Unknown]
  - Choking [Not Recovered/Not Resolved]
  - Asthmatic crisis [Not Recovered/Not Resolved]
  - Hypersensitivity [Not Recovered/Not Resolved]
  - Anal incontinence [Not Recovered/Not Resolved]
  - Chills [Recovered/Resolved]
  - Influenza [Unknown]
  - Nervousness [Recovering/Resolving]
  - Hypoaesthesia [Unknown]
  - Cough [Recovered/Resolved]
  - Pharyngeal oedema [Recovering/Resolving]
  - Dysphagia [Recovering/Resolving]
  - Vomiting [Not Recovered/Not Resolved]
  - Nodule [Recovering/Resolving]
  - Chikungunya virus infection [Unknown]
  - Lymphadenopathy [Not Recovered/Not Resolved]
  - Arthropathy [Not Recovered/Not Resolved]
  - Spinal cord injury lumbar [Recovering/Resolving]
  - Nausea [Recovered/Resolved]
  - Application site pruritus [Recovered/Resolved]
  - Angina unstable [Recovered/Resolved]
  - Respiratory disorder [Not Recovered/Not Resolved]
  - Breast mass [Recovering/Resolving]

NARRATIVE: CASE EVENT DATE: 20141104
